FAERS Safety Report 8279888-2 (Version None)
Quarter: 2012Q2

REPORT INFORMATION
  Report Type: 
  Country: None (occurrence: None)
  Receive Date: 20120412
  Receipt Date: 20120217
  Transmission Date: 20120825
  Serious: No
  Sender: FDA-Public Use
  Company Number: US-ASTRAZENECA-2011SE12739

PATIENT
  Age: 65 Year
  Sex: Female

DRUGS (4)
  1. NEXIUM [Suspect]
     Route: 048
  2. TOPROL-XL [Suspect]
     Route: 048
  3. PEPCID [Concomitant]
  4. ZEGERID [Concomitant]

REACTIONS (3)
  - HEADACHE [None]
  - ABDOMINAL DISCOMFORT [None]
  - DRUG DOSE OMISSION [None]
